FAERS Safety Report 17709995 (Version 1)
Quarter: 2020Q2

REPORT INFORMATION
  Report Type: Spontaneous
  Country: FR (occurrence: FR)
  Receive Date: 20200427
  Receipt Date: 20200427
  Transmission Date: 20200714
  Serious: Yes (Other)
  Sender: FDA-Public Use
  Company Number: FR-GLAXOSMITHKLINE-FR2020068972

PATIENT
  Sex: Male

DRUGS (1)
  1. SCOPODERM TTS [Suspect]
     Active Substance: SCOPOLAMINE
     Indication: PRODUCT USED FOR UNKNOWN INDICATION
     Dosage: UNK
     Dates: start: 20200420

REACTIONS (4)
  - Product prescribing issue [Unknown]
  - Hallucination [Unknown]
  - Wrong technique in product usage process [Unknown]
  - Swollen tongue [Unknown]
